FAERS Safety Report 19704182 (Version 1)
Quarter: 2021Q3

REPORT INFORMATION
  Report Type: Spontaneous
  Country: US (occurrence: US)
  Receive Date: 20210814
  Receipt Date: 20210814
  Transmission Date: 20211014
  Serious: Yes (Other)
  Sender: FDA-Public Use
  Company Number: None

PATIENT
  Age: 44 Year
  Sex: Female
  Weight: 65.25 kg

DRUGS (5)
  1. VITAMIN D [Concomitant]
     Active Substance: VITAMIN D NOS
  2. ZINC. [Concomitant]
     Active Substance: ZINC
  3. EMERGEN?C [Concomitant]
     Active Substance: VITAMINS
  4. ZYRTEC [Concomitant]
     Active Substance: CETIRIZINE HYDROCHLORIDE
  5. BENGAY ULTRA STRENGTH NON?GREASY [Suspect]
     Active Substance: CAMPHOR (SYNTHETIC)\MENTHOL\METHYL SALICYLATE
     Indication: NECK PAIN
     Route: 061
     Dates: start: 20210801, end: 20210801

REACTIONS (5)
  - Application site pain [None]
  - Chemical burn of skin [None]
  - Application site vesicles [None]
  - Skin erosion [None]
  - Skin injury [None]

NARRATIVE: CASE EVENT DATE: 20210809
